FAERS Safety Report 19861270 (Version 7)
Quarter: 2022Q4

REPORT INFORMATION
  Report Type: Spontaneous
  Country: US (occurrence: US)
  Receive Date: 20210921
  Receipt Date: 20221104
  Transmission Date: 20230113
  Serious: No
  Sender: FDA-Public Use
  Company Number: US-PFIZER INC-202101099325

PATIENT
  Age: 15 Year
  Sex: Male
  Weight: 60.33 kg

DRUGS (2)
  1. GENOTROPIN [Suspect]
     Active Substance: SOMATROPIN
     Indication: Growth hormone deficiency
     Dosage: 2.6 MG ONCE A DAY AT NIGHT INJECTION
     Dates: start: 2020
  2. GENOTROPIN [Suspect]
     Active Substance: SOMATROPIN
     Dosage: 2.8 MG, 1X/DAY

REACTIONS (7)
  - Therapeutic product effect incomplete [Unknown]
  - Device physical property issue [Unknown]
  - Device leakage [Unknown]
  - Device breakage [Unknown]
  - Device information output issue [Unknown]
  - Product dose omission issue [Unknown]
  - Device power source issue [Unknown]

NARRATIVE: CASE EVENT DATE: 20210501
